FAERS Safety Report 6446043-8 (Version None)
Quarter: 2009Q4

REPORT INFORMATION
  Report Type: 
  Country: None (occurrence: None)
  Receive Date: 20091119
  Receipt Date: 20090925
  Transmission Date: 20100525
  Serious: No
  Sender: FDA-Public Use
  Company Number: A0809069A

PATIENT
  Age: 41 Year
  Sex: Female

DRUGS (2)
  1. WELLBUTRIN SR [Suspect]
     Indication: DEPRESSION
     Dosage: 150MG TWICE PER DAY
     Route: 048
     Dates: start: 20090910, end: 20090923
  2. NASACORT [Concomitant]

REACTIONS (3)
  - AGITATION [None]
  - HOSTILITY [None]
  - RASH [None]
